FAERS Safety Report 9205383 (Version 4)
Quarter: 2013Q4

REPORT INFORMATION
  Report Type: Spontaneous
  Country: GB (occurrence: GB)
  Receive Date: 20130402
  Receipt Date: 20131114
  Transmission Date: 20140711
  Serious: Yes (Hospitalization, Other)
  Sender: FDA-Public Use
  Company Number: GB-MERCK-1303GBR013511

PATIENT
  Age: 71 Year
  Sex: Female
  Weight: 57 kg

DRUGS (19)
  1. ZOCOR [Suspect]
     Indication: INFECTION
     Route: 048
  2. CUBICIN [Suspect]
     Indication: ARTHRITIS INFECTIVE
     Dosage: 350 MG, QD
     Route: 042
     Dates: start: 20130306, end: 20130310
  3. ASPIRIN [Concomitant]
  4. BENDROFLUMETHIAZIDE [Concomitant]
  5. CHLORPHENAMINE [Concomitant]
  6. CIPROFLOXACIN [Concomitant]
  7. ACETAMINOPHEN (+) CODEINE PHOSPHATE [Concomitant]
  8. CYCLIZINE [Concomitant]
  9. ENOXAPARIN SODIUM [Concomitant]
  10. GENTAMICIN [Concomitant]
  11. MOMETASONE FUROATE [Concomitant]
  12. MORPHINE SULFATE [Concomitant]
  13. OMEPRAZOLE [Concomitant]
  14. ONDANSETRON [Concomitant]
  15. ACETAMINOPHEN [Concomitant]
  16. RIFAMPIN [Concomitant]
  17. SANDO-K [Concomitant]
  18. TRAMADOL HYDROCHLORIDE [Concomitant]
  19. VANCOMYCIN [Concomitant]

REACTIONS (3)
  - Tachycardia [Recovering/Resolving]
  - Atrial fibrillation [Unknown]
  - Blood creatine phosphokinase increased [Unknown]
